FAERS Safety Report 24556512 (Version 1)
Quarter: 2024Q4

REPORT INFORMATION
  Report Type: Spontaneous
  Country: US (occurrence: None)
  Receive Date: 20241027
  Receipt Date: 20241027
  Transmission Date: 20250115
  Serious: No
  Sender: Public
  Company Number: None

PATIENT
  Age: 38 Year
  Sex: Female
  Weight: 74.7 kg

DRUGS (8)
  1. ZEPBOUND [Suspect]
     Active Substance: TIRZEPATIDE
     Indication: Obesity
     Dosage: OTHER QUANTITY : 1 INJECTION(S);?OTHER FREQUENCY : ONCE WEEKLY;?OTHER ROUTE : INJECTION INTO STOMACH
     Route: 050
     Dates: start: 20240201
  2. LYSTEDA [Concomitant]
  3. LEXAPRO [Concomitant]
     Active Substance: ESCITALOPRAM OXALATE
  4. Zofran [Concomitant]
  5. NAPROXEN [Concomitant]
  6. Vitamin D [Concomitant]
  7. FISH OIL [Concomitant]
  8. BIOTIN [Concomitant]
     Active Substance: BIOTIN

REACTIONS (6)
  - Diarrhoea [None]
  - Abdominal pain upper [None]
  - Nausea [None]
  - Vomiting [None]
  - Mood altered [None]
  - Decreased interest [None]

NARRATIVE: CASE EVENT DATE: 20241025
